FAERS Safety Report 9430181 (Version 1)
Quarter: 2013Q3

REPORT INFORMATION
  Report Type: Report from Study
  Country: AT (occurrence: AT)
  Receive Date: 20130730
  Receipt Date: 20130730
  Transmission Date: 20140515
  Serious: Yes (Death, Other)
  Sender: FDA-Public Use
  Company Number: AT-BAXTER-2013BAX029454

PATIENT
  Sex: 0

DRUGS (10)
  1. ENDOXAN ^BAXTER^ 1G - TROCKENSTECHAMPULLE [Suspect]
     Indication: T-CELL PROLYMPHOCYTIC LEUKAEMIA
     Dosage: ON DAYS 1 THROUGH 3 TO BE REPEATED ON DAY 28
     Route: 042
  2. MITOXANTRONE [Suspect]
     Indication: T-CELL PROLYMPHOCYTIC LEUKAEMIA
     Dosage: ON DAY 1
     Route: 042
  3. FLUDARABINE PHOSPHATE [Suspect]
     Indication: T-CELL PROLYMPHOCYTIC LEUKAEMIA
     Dosage: ON DAYS 1 THROUGH 3
     Route: 042
  4. ALEMTUZUMAB [Suspect]
     Indication: T-CELL PROLYMPHOCYTIC LEUKAEMIA
     Dosage: ON DAY 1
     Route: 042
  5. ALEMTUZUMAB [Suspect]
     Dosage: ON DAY 2
     Route: 042
  6. ALEMTUZUMAB [Suspect]
     Dosage: ON DAY 3
     Route: 042
  7. ALEMTUZUMAB [Suspect]
     Route: 042
  8. TRIMETHOPRIM [Concomitant]
     Indication: PROPHYLAXIS
     Route: 048
  9. SULFAMETHOXAZOLE [Concomitant]
     Indication: T-CELL PROLYMPHOCYTIC LEUKAEMIA
     Route: 048
  10. VALACYCLOVIR [Concomitant]
     Indication: PROPHYLAXIS
     Route: 065

REACTIONS (2)
  - Death [Fatal]
  - Metastasis [Unknown]
